FAERS Safety Report 7146158-5 (Version None)
Quarter: 2010Q4

REPORT INFORMATION
  Report Type: 
  Country: None (occurrence: None)
  Receive Date: 20101208
  Receipt Date: 20101201
  Transmission Date: 20110411
  Serious: Yes (Life-Threatening, Hospitalization, Other)
  Sender: FDA-Public Use
  Company Number: US-US-EMD SERONO, INC.-231875J10USA

PATIENT
  Sex: Female
  Weight: 97 kg

DRUGS (23)
  1. REBIF [Suspect]
     Indication: MULTIPLE SCLEROSIS
     Route: 058
     Dates: start: 20071121
  2. LOVENOX [Concomitant]
     Indication: DEEP VEIN THROMBOSIS
     Route: 065
  3. CIPRO [Concomitant]
     Indication: URINARY TRACT INFECTION
     Route: 065
     Dates: start: 20100101, end: 20100101
  4. PREVACID [Concomitant]
     Route: 065
  5. LEVOTHYROXINE SODIUM [Concomitant]
     Route: 065
  6. TIZANIDINE [Concomitant]
     Route: 065
  7. VITAMIN D [Concomitant]
     Route: 065
  8. UNSPECIFIED MEDICATION [Concomitant]
     Indication: HEART DISEASE CONGENITAL
     Route: 065
     Dates: start: 20060101
  9. COUMADIN [Concomitant]
     Indication: DEEP VEIN THROMBOSIS
     Route: 065
     Dates: start: 20030101
  10. PRILOSEC [Concomitant]
     Route: 065
  11. PHENERGAN [Concomitant]
     Route: 065
  12. MIDRIN [Concomitant]
     Route: 065
  13. MIRALAX [Concomitant]
     Route: 065
  14. HYDROCORTISONE [Concomitant]
     Indication: ECZEMA
     Route: 065
  15. NEURONTIN [Concomitant]
     Route: 065
  16. EFFEXOR [Concomitant]
     Route: 065
  17. ALBUTEROL [Concomitant]
     Route: 065
  18. VALIUM [Concomitant]
     Route: 065
  19. NITROFURANTOIN (MONOHYDRATE/MACROCRYSTALS) [Concomitant]
     Indication: CATHETER PLACEMENT
     Route: 065
  20. DANTROLENE SODIUM [Concomitant]
     Route: 065
  21. BUTALBITAL [Concomitant]
     Route: 065
  22. FEXOFENADINE HCL [Concomitant]
     Route: 065
  23. MORPHINE SULFATE [Concomitant]

REACTIONS (16)
  - ABDOMINAL PAIN [None]
  - ANAEMIA [None]
  - ASTHENIA [None]
  - BLOOD POTASSIUM DECREASED [None]
  - CARDIAC ARREST [None]
  - CARDIAC FAILURE [None]
  - DIARRHOEA [None]
  - INJECTION SITE ERYTHEMA [None]
  - INJECTION SITE HAEMATOMA [None]
  - INJECTION SITE PAIN [None]
  - INSOMNIA [None]
  - MUSCLE SPASMS [None]
  - POSTOPERATIVE WOUND INFECTION [None]
  - THYROID DISORDER [None]
  - TRAUMATIC LUNG INJURY [None]
  - VENTRICULAR TACHYCARDIA [None]
